APPROVED DRUG PRODUCT: INDIUM IN-111 PENTETREOTIDE KIT
Active Ingredient: INDIUM IN-111 PENTETREOTIDE KIT
Strength: 3mCi/ML
Dosage Form/Route: INJECTABLE;INJECTION
Application: A212785 | Product #001 | TE Code: AP
Applicant: SUN PHARMACEUTICAL INDUSTRIES INC
Approved: Jul 1, 2024 | RLD: No | RS: No | Type: RX